FAERS Safety Report 4764253-2 (Version None)
Quarter: 2005Q3

REPORT INFORMATION
  Report Type: 
  Country: None (occurrence: None)
  Receive Date: 20050907
  Receipt Date: 20050824
  Transmission Date: 20060218
  Serious: Yes (Hospitalization)
  Sender: FDA-Public Use
  Company Number: 217392

PATIENT
  Age: 30 Year
  Sex: Female

DRUGS (17)
  1. HERCEPTIN [Suspect]
     Indication: BREAST CANCER METASTATIC
     Dosage: SEE IMAGE
     Route: 042
     Dates: start: 20041229, end: 20041229
  2. HERCEPTIN [Suspect]
     Indication: BREAST CANCER METASTATIC
     Dosage: SEE IMAGE
     Route: 042
     Dates: start: 20050101
  3. CAPECITABINE (CAPECITABINE) [Suspect]
     Indication: BREAST CANCER METASTATIC
     Dosage: 2000 MG/M2, BID, ORAL
     Route: 048
     Dates: start: 20041229, end: 20050121
  4. VINORELBINE TARTRATE [Suspect]
     Indication: BREAST CANCER METASTATIC
     Dosage: SEE IMAGE
     Route: 048
     Dates: end: 20050121
  5. VINORELBINE TARTRATE [Suspect]
     Indication: BREAST CANCER METASTATIC
     Dosage: SEE IMAGE
     Route: 048
     Dates: start: 20041229
  6. PRAZEPAM [Concomitant]
  7. FLEET (SODIUM PHOSPHATE, MONOBASIC, SODIUM PHOSPHATE, DIBASIC) [Concomitant]
  8. BUSCOPAN (SCOPOLAMINE BUTYLBROMIDE) [Concomitant]
  9. TRAMADOL HCL [Concomitant]
  10. LITICAN (ALIZAPRIDE HYDROCHLORIDE) [Concomitant]
  11. LORAZEPAM [Concomitant]
  12. PRODAFALGAN (PROPACETAMOL) [Concomitant]
  13. DULCOLAX [Concomitant]
  14. DUPHALAC [Concomitant]
  15. SPASMOMEN (OTILONIUM BROMIDE) [Concomitant]
  16. ZOLPIDEM TARTRATE [Concomitant]
  17. SANDOSTATIN [Concomitant]

REACTIONS (2)
  - ILEUS [None]
  - NEUTROPENIA [None]
